FAERS Safety Report 21041259 (Version 2)
Quarter: 2022Q3

REPORT INFORMATION
  Report Type: Spontaneous
  Country: HK (occurrence: HK)
  Receive Date: 20220705
  Receipt Date: 20220913
  Transmission Date: 20221027
  Serious: Yes (Other)
  Sender: FDA-Public Use
  Company Number: HK-AMGEN-HKGSP2022112084

PATIENT
  Age: 20 Month
  Sex: Male

DRUGS (11)
  1. BLINATUMOMAB [Suspect]
     Active Substance: BLINATUMOMAB
     Indication: Acute lymphocytic leukaemia
     Route: 065
  2. FLUDARABINE [Concomitant]
     Active Substance: FLUDARABINE PHOSPHATE
  3. FLUDARABINE [Concomitant]
     Active Substance: FLUDARABINE PHOSPHATE
     Dosage: 150 MILLIGRAM/SQ. METER
  4. THIOTEPA [Concomitant]
     Active Substance: THIOTEPA
  5. BUSULFAN [Concomitant]
     Active Substance: BUSULFAN
  6. THYMOGLOBULINE [Concomitant]
     Active Substance: LAPINE T-LYMPHOCYTE IMMUNE GLOBULIN
  7. BORTEZOMIB;CYCLOPHOSPHAMIDE;DEXAMETHASONE [Concomitant]
  8. CLOFARABINE [Concomitant]
     Active Substance: CLOFARABINE
  9. ETOPOSIDE [Concomitant]
     Active Substance: ETOPOSIDE
  10. VINORELBINE [Concomitant]
     Active Substance: VINORELBINE TARTRATE
  11. MELPHALAN [Concomitant]
     Active Substance: MELPHALAN
     Dosage: 140 MILLIGRAM/SQ. METER

REACTIONS (2)
  - Acute lymphocytic leukaemia recurrent [Recovered/Resolved]
  - Drug ineffective [Unknown]
